FAERS Safety Report 15721675 (Version 2)
Quarter: 2018Q4

REPORT INFORMATION
  Report Type: Spontaneous
  Country: ES (occurrence: ES)
  Receive Date: 20181214
  Receipt Date: 20181228
  Transmission Date: 20190205
  Serious: Yes (Other)
  Sender: FDA-Public Use
  Company Number: ES-ROCHE-2228886

PATIENT
  Age: 10 Year
  Sex: Female
  Weight: 35 kg

DRUGS (1)
  1. XOLAIR [Suspect]
     Active Substance: OMALIZUMAB
     Indication: DERMATITIS ATOPIC
     Dosage: 525 MG, BIW, ((2 OF 150 MG IN ONE ARM AND 150 +75 MG IN THE OTHER ARM).)
     Route: 058
     Dates: start: 20181128, end: 20181128

REACTIONS (5)
  - Rhinitis [Unknown]
  - Off label use [Unknown]
  - Headache [Unknown]
  - Anaphylactic reaction [Unknown]
  - Product use in unapproved indication [Unknown]

NARRATIVE: CASE EVENT DATE: 20181128
